FAERS Safety Report 6721997-0 (Version None)
Quarter: 2010Q2

REPORT INFORMATION
  Report Type: 
  Country: None (occurrence: None)
  Receive Date: 20100512
  Receipt Date: 20100503
  Transmission Date: 20101027
  Serious: Yes (Other)
  Sender: FDA-Public Use
  Company Number: B0652160A

PATIENT
  Age: 36 Year
  Sex: Female

DRUGS (4)
  1. KIVEXA [Suspect]
     Indication: HIV INFECTION
     Route: 048
     Dates: start: 20100211, end: 20100216
  2. PREZISTA [Suspect]
     Indication: HIV INFECTION
     Dosage: 400MG PER DAY
     Route: 048
     Dates: start: 20100211, end: 20100216
  3. NORVIR [Suspect]
     Indication: HIV INFECTION
     Dosage: 100MG PER DAY
     Route: 048
     Dates: start: 20100211, end: 20100216
  4. SEPTRIN FORTE [Concomitant]
     Route: 065
     Dates: start: 20091101, end: 20100408

REACTIONS (2)
  - LARYNGEAL OEDEMA [None]
  - RASH [None]
